FAERS Safety Report 7050104-2 (Version None)
Quarter: 2010Q4

REPORT INFORMATION
  Report Type: 
  Country: None (occurrence: None)
  Receive Date: 20101018
  Receipt Date: 20101013
  Transmission Date: 20110411
  Serious: Yes (Hospitalization)
  Sender: FDA-Public Use
  Company Number: FR-BRISTOL-MYERS SQUIBB COMPANY-15333826

PATIENT
  Age: 54 Year
  Sex: Female

DRUGS (2)
  1. FUNGIZONE [Suspect]
     Indication: MENINGITIS CRYPTOCOCCAL
     Route: 042
     Dates: start: 20100817, end: 20100823
  2. ANCOTIL [Suspect]
     Indication: MENINGITIS CRYPTOCOCCAL
     Dosage: STRENGTH:1 PERCENT
     Route: 042
     Dates: start: 20100817, end: 20100824

REACTIONS (2)
  - HAEMOLYTIC ANAEMIA [None]
  - RENAL FAILURE ACUTE [None]
